FAERS Safety Report 15990376 (Version 1)
Quarter: 2019Q1

REPORT INFORMATION
  Report Type: Spontaneous
  Country: FR (occurrence: FR)
  Receive Date: 20190221
  Receipt Date: 20190221
  Transmission Date: 20190418
  Serious: Yes (Other)
  Sender: FDA-Public Use
  Company Number: FR-009507513-1902FRA006388

PATIENT
  Sex: Male

DRUGS (2)
  1. CORTISONE [Suspect]
     Active Substance: CORTISONE\HYDROCORTISONE
     Dosage: 1 MILLIGRAM, PER DAYFOR TWO MONTHS
  2. KEYTRUDA [Suspect]
     Active Substance: PEMBROLIZUMAB
     Dosage: 6 MONTHS
     Dates: start: 201808

REACTIONS (3)
  - Adverse event [Unknown]
  - Spinal compression fracture [Unknown]
  - Osteoporosis [Unknown]
